FAERS Safety Report 9931500 (Version 1)
Quarter: 2014Q1

REPORT INFORMATION
  Report Type: Spontaneous
  Country: CH (occurrence: CH)
  Receive Date: 20140228
  Receipt Date: 20140228
  Transmission Date: 20141002
  Serious: Yes (Hospitalization)
  Sender: FDA-Public Use
  Company Number: CH-JNJFOC-20140209673

PATIENT
  Age: 38 Year
  Sex: Female
  Weight: 70 kg

DRUGS (10)
  1. INFLIXIMAB, RECOMBINANT [Suspect]
     Indication: COLITIS ULCERATIVE
     Route: 042
     Dates: start: 20130415, end: 2013
  2. INFLIXIMAB, RECOMBINANT [Suspect]
     Indication: COLITIS ULCERATIVE
     Route: 042
     Dates: start: 2013, end: 201309
  3. AZATHIOPRINE [Suspect]
     Indication: COLITIS ULCERATIVE
     Route: 065
     Dates: start: 20130819
  4. PREDNISONE [Suspect]
     Indication: COLITIS ULCERATIVE
     Dosage: TAPERED DOSE
     Route: 048
  5. PREDNISONE [Suspect]
     Indication: COLITIS ULCERATIVE
     Route: 048
  6. PREDNISONE [Suspect]
     Indication: COLITIS ULCERATIVE
     Route: 048
  7. PREDNISONE [Suspect]
     Indication: COLITIS ULCERATIVE
     Route: 048
  8. CALCIUM AND VITAMIN D3 [Concomitant]
     Indication: OSTEOPENIA
     Route: 065
     Dates: start: 201103
  9. VITAMIN B12 [Concomitant]
     Indication: VITAMIN B12 DEFICIENCY
     Dosage: ONCE EVERY 1-3 MONTHS
     Route: 065
  10. VITAMIN B12 [Concomitant]
     Indication: VITAMIN B12 DEFICIENCY
     Route: 065
     Dates: start: 201211

REACTIONS (5)
  - Pyrexia [Recovered/Resolved]
  - General physical health deterioration [Recovered/Resolved]
  - Colitis ulcerative [Unknown]
  - Prescribed overdose [Recovered/Resolved]
  - Drug ineffective [Recovered/Resolved]
